FAERS Safety Report 15543120 (Version 1)
Quarter: 2018Q4

REPORT INFORMATION
  Report Type: Spontaneous
  Country: FR (occurrence: FR)
  Receive Date: 20181023
  Receipt Date: 20181023
  Transmission Date: 20190205
  Serious: Yes (Life-Threatening, Other)
  Sender: FDA-Public Use
  Company Number: FR-JNJFOC-20181028836

PATIENT
  Age: 9 Decade
  Sex: Female

DRUGS (1)
  1. DARZALEX [Suspect]
     Active Substance: DARATUMUMAB
     Indication: PRODUCT USED FOR UNKNOWN INDICATION
     Route: 065
     Dates: start: 20181018, end: 20181018

REACTIONS (3)
  - Infusion related reaction [Unknown]
  - Respiratory arrest [Unknown]
  - Bronchospasm [Unknown]

NARRATIVE: CASE EVENT DATE: 20181018
